FAERS Safety Report 21699864 (Version 1)
Quarter: 2022Q4

REPORT INFORMATION
  Report Type: Spontaneous
  Country: ES (occurrence: ES)
  Receive Date: 20221208
  Receipt Date: 20221208
  Transmission Date: 20230113
  Serious: Yes (Hospitalization)
  Sender: FDA-Public Use
  Company Number: None

PATIENT
  Age: 69 Year
  Sex: Female
  Weight: 78 kg

DRUGS (3)
  1. FLUOROURACIL [Suspect]
     Active Substance: FLUOROURACIL
     Indication: Pancreatic carcinoma
     Dosage: STRENGHT:50 MG/ML?1 VIAL OF 100 ML?3513.60 MG DURING 46 HOURS EVERY 15 DAYS
     Dates: start: 20220823, end: 20220823
  2. IRINOTECAN [Suspect]
     Active Substance: IRINOTECAN
     Indication: Pancreatic carcinoma
     Dosage: STRENGTH: 20 MG/ML?1 VIAL OF 25 ML?219.60 MG EVERY 15 DAY
     Dates: start: 20220823, end: 20220823
  3. OXALIPLATIN [Suspect]
     Active Substance: OXALIPLATIN
     Indication: Pancreatic carcinoma
     Dosage: STRENGTH: 5 MG/ML?1 VIAL OF 20 ML?155.5 MG EVERY 15 DAYS
     Dates: start: 20220823, end: 20220823

REACTIONS (5)
  - Bronchospasm [Recovered/Resolved]
  - Hypoxia [Recovered/Resolved]
  - Dyspnoea [Recovered/Resolved]
  - Pruritus allergic [Recovered/Resolved]
  - Formication [Recovered/Resolved]

NARRATIVE: CASE EVENT DATE: 20220823
